FAERS Safety Report 18817562 (Version 1)
Quarter: 2021Q1

REPORT INFORMATION
  Report Type: Spontaneous
  Country: US (occurrence: US)
  Receive Date: 20210201
  Receipt Date: 20210201
  Transmission Date: 20210419
  Serious: Yes (Other)
  Sender: FDA-Public Use
  Company Number: US-NOVOPROD-782775

PATIENT
  Sex: Female

DRUGS (2)
  1. NOVOLOG [Suspect]
     Active Substance: INSULIN ASPART
     Indication: DIABETES MELLITUS
     Dosage: UNK
     Route: 058
  2. NOVOLOG [Suspect]
     Active Substance: INSULIN ASPART
     Dosage: UNK
     Route: 058

REACTIONS (9)
  - Blood glucose fluctuation [Unknown]
  - Transient ischaemic attack [Unknown]
  - Anxiety [Unknown]
  - Manufacturing product shipping issue [Unknown]
  - Cerebrovascular accident [Recovered/Resolved with Sequelae]
  - Drug ineffective [Unknown]
  - Loss of consciousness [Recovered/Resolved]
  - Blood glucose increased [Unknown]
  - Product quality issue [Unknown]
